FAERS Safety Report 24977821 (Version 2)
Quarter: 2025Q1

REPORT INFORMATION
  Report Type: Report from Study
  Country: DE (occurrence: DE)
  Receive Date: 20250217
  Receipt Date: 20250228
  Transmission Date: 20250409
  Serious: No
  Sender: TAKEDA
  Company Number: DE-TAKEDA-2025TUS004063

PATIENT
  Age: 31 Year
  Sex: Female

DRUGS (2)
  1. HUMAN IMMUNOGLOBULIN G [Suspect]
     Active Substance: HUMAN IMMUNOGLOBULIN G
     Indication: Primary immunodeficiency syndrome
     Dosage: 8 GRAM, 1/WEEK
     Dates: start: 20250108
  2. HUMAN IMMUNOGLOBULIN G [Suspect]
     Active Substance: HUMAN IMMUNOGLOBULIN G
     Dosage: 8 GRAM, 1/WEEK

REACTIONS (2)
  - No adverse event [Unknown]
  - Pregnancy [Unknown]

NARRATIVE: CASE EVENT DATE: 20250108
